FAERS Safety Report 19208256 (Version 2)
Quarter: 2021Q3

REPORT INFORMATION
  Report Type: Spontaneous
  Country: US (occurrence: US)
  Receive Date: 20210503
  Receipt Date: 20210729
  Transmission Date: 20211014
  Serious: Yes (Hospitalization)
  Sender: FDA-Public Use
  Company Number: US-NOVOPROD-807212

PATIENT
  Age: 67 Year
  Sex: Female

DRUGS (1)
  1. VICTOZA [Suspect]
     Active Substance: LIRAGLUTIDE
     Indication: PRODUCT USED FOR UNKNOWN INDICATION
     Dosage: UNK
     Route: 058

REACTIONS (2)
  - Renal failure [Unknown]
  - Septic shock [Unknown]

NARRATIVE: CASE EVENT DATE: 2020
